FAERS Safety Report 17311455 (Version 1)
Quarter: 2020Q1

REPORT INFORMATION
  Report Type: Spontaneous
  Country: US (occurrence: US)
  Receive Date: 20200123
  Receipt Date: 20200123
  Transmission Date: 20200409
  Serious: No
  Sender: FDA-Public Use
  Company Number: US-ROCHE-2318435

PATIENT
  Age: 73 Year
  Sex: Male

DRUGS (2)
  1. RITUXAN [Suspect]
     Active Substance: RITUXIMAB
     Indication: PRODUCT USED FOR UNKNOWN INDICATION
     Dosage: TREATMENT HELD
     Route: 042
     Dates: start: 20190509
  2. BENADRYL [Concomitant]
     Active Substance: DIPHENHYDRAMINE HYDROCHLORIDE

REACTIONS (5)
  - Nasal congestion [Unknown]
  - Eye irritation [Unknown]
  - Sneezing [Unknown]
  - Nasal discomfort [Unknown]
  - Urticaria [Unknown]
